FAERS Safety Report 6705351-3 (Version None)
Quarter: 2010Q2

REPORT INFORMATION
  Report Type: 
  Country: None (occurrence: None)
  Receive Date: 20100502
  Receipt Date: 20100429
  Transmission Date: 20101027
  Serious: Yes (Hospitalization, Other)
  Sender: FDA-Public Use
  Company Number: IT-BRISTOL-MYERS SQUIBB COMPANY-14995070

PATIENT
  Age: 82 Year
  Sex: Female

DRUGS (3)
  1. COUMADIN [Suspect]
     Indication: THROMBOSIS PROPHYLAXIS
     Route: 048
     Dates: start: 20090219, end: 20100205
  2. RAMIPRIL [Concomitant]
  3. DONEPEZIL HCL [Concomitant]

REACTIONS (4)
  - ANAEMIA [None]
  - DIZZINESS [None]
  - PRESYNCOPE [None]
  - URINARY INCONTINENCE [None]
